FAERS Safety Report 24750092 (Version 6)
Quarter: 2025Q4

REPORT INFORMATION
  Report Type: Spontaneous
  Country: US (occurrence: US)
  Receive Date: 20241218
  Receipt Date: 20251111
  Transmission Date: 20260117
  Serious: Yes (Hospitalization)
  Sender: SANOFI AVENTIS
  Company Number: US-SA-2024SA372978

PATIENT
  Age: 3 Year
  Sex: Male
  Weight: 14.3 kg

DRUGS (5)
  1. DUPIXENT [Suspect]
     Active Substance: DUPILUMAB
     Indication: Eosinophilic oesophagitis
     Dosage: 200 MG, Q3W
     Route: 058
     Dates: start: 20241206
  2. DUPIXENT [Suspect]
     Active Substance: DUPILUMAB
     Dates: start: 202411
  3. PULMICORT TURBUHALER [Concomitant]
     Active Substance: BUDESONIDE
     Indication: Eosinophilic oesophagitis
     Dosage: 0.5 MG, BID
     Route: 048
     Dates: start: 20221230
  4. PREVACID [Concomitant]
     Active Substance: LANSOPRAZOLE
     Indication: Gastrooesophageal reflux disease
     Dosage: 10 MG, BID
     Route: 047
     Dates: start: 20230724
  5. XOLAIR [Concomitant]
     Active Substance: OMALIZUMAB
     Indication: Eosinophilic oesophagitis
     Dosage: UNK

REACTIONS (6)
  - Cellulitis [Recovering/Resolving]
  - Pyrexia [Recovered/Resolved]
  - Injection site pain [Unknown]
  - Injection site swelling [Unknown]
  - Injection site erythema [Recovered/Resolved]
  - Injection site pruritus [Recovered/Resolved]

NARRATIVE: CASE EVENT DATE: 20241207
